FAERS Safety Report 8481094-3 (Version None)
Quarter: 2012Q3

REPORT INFORMATION
  Report Type: 
  Country: None (occurrence: None)
  Receive Date: 20120702
  Receipt Date: 20120628
  Transmission Date: 20120928
  Serious: Yes (Other)
  Sender: FDA-Public Use
  Company Number: PHFR2012GB003760

PATIENT
  Age: 73 Year
  Sex: Male
  Weight: 90 kg

DRUGS (6)
  1. RIVASTIGMINE [Suspect]
     Dosage: 9.5 MG, UNK
     Route: 062
     Dates: end: 20120618
  2. BUSPIRONE HCL [Concomitant]
  3. PREGABALIN [Concomitant]
  4. RIVASTIGMINE [Suspect]
     Indication: DEMENTIA ALZHEIMER'S TYPE
     Dosage: 4.6 MG, UNK
     Route: 062
     Dates: start: 20120206
  5. ESCITALOPRAM [Concomitant]
  6. LOPERAMIDE [Concomitant]

REACTIONS (4)
  - SKIN HAEMORRHAGE [None]
  - PRURITUS [None]
  - SCRATCH [None]
  - SKIN IRRITATION [None]
